FAERS Safety Report 4597597-8 (Version None)
Quarter: 2005Q1

REPORT INFORMATION
  Report Type: 
  Country: None (occurrence: None)
  Receive Date: 20050228
  Receipt Date: 20050228
  Transmission Date: 20050727
  Serious: Yes (Death)
  Sender: FDA-Public Use
  Company Number: None

PATIENT
  Sex: Male
  Weight: 104.3273 kg

DRUGS (1)
  1. ADDERALL XR 5 [Suspect]
     Dosage: ONE DAY ORAL
     Route: 048

REACTIONS (2)
  - EYE HAEMORRHAGE [None]
  - SUDDEN DEATH [None]
